FAERS Safety Report 8933271 (Version 6)
Quarter: 2018Q2

REPORT INFORMATION
  Report Type: Spontaneous
  Country: US (occurrence: US)
  Receive Date: 20121128
  Receipt Date: 20180406
  Transmission Date: 20180711
  Serious: Yes (Death, Other)
  Sender: FDA-Public Use
  Company Number: US-BAYER-2012-124042

PATIENT
  Age: 71 Year
  Sex: Female

DRUGS (1)
  1. ALEVE [Suspect]
     Active Substance: NAPROXEN SODIUM
     Dosage: UNK

REACTIONS (8)
  - Brain death [Fatal]
  - Gastric perforation [Fatal]
  - Haematemesis [Unknown]
  - Aortic aneurysm [Fatal]
  - Pain [None]
  - Brain injury [Unknown]
  - Cardiac disorder [Unknown]
  - Mouth haemorrhage [Unknown]
